FAERS Safety Report 11446843 (Version 1)
Quarter: 2015Q3

REPORT INFORMATION
  Report Type: Spontaneous
  Country: US (occurrence: US)
  Receive Date: 20150831
  Receipt Date: 20150831
  Transmission Date: 20151125
  Serious: No
  Sender: FDA-Public Use
  Company Number: US-ELI_LILLY_AND_COMPANY-US200811004817

PATIENT
  Sex: Female

DRUGS (14)
  1. CYMBALTA [Suspect]
     Active Substance: DULOXETINE HYDROCHLORIDE
     Indication: FIBROMYALGIA
     Dosage: 30 MG, DAILY (1/D)
  2. ASPIRIN CHILDREN [Concomitant]
     Indication: CARDIAC DISORDER
     Dosage: 81 MG, UNK
  3. ALDACTONE [Concomitant]
     Active Substance: SPIRONOLACTONE
     Dosage: 1 D/F, DAILY (1/D)
  4. DARVOCET [Concomitant]
     Active Substance: ACETAMINOPHEN\PROPOXYPHENE HYDROCHLORIDE
     Dosage: 1 D/F, DAILY (1/D)
  5. CYMBALTA [Suspect]
     Active Substance: DULOXETINE HYDROCHLORIDE
     Dosage: 90 MEQ, UNK
     Dates: start: 20081119
  6. BENTYL [Concomitant]
     Active Substance: DICYCLOMINE HYDROCHLORIDE
     Dosage: 1 D/F, AS NEEDED
  7. CYMBALTA [Suspect]
     Active Substance: DULOXETINE HYDROCHLORIDE
     Dosage: 120 MG, DAILY (1/D)
     Dates: start: 200810
  8. CYMBALTA [Suspect]
     Active Substance: DULOXETINE HYDROCHLORIDE
     Dosage: 90 MG, DAILY (1/D)
     Dates: start: 200805, end: 200810
  9. VITAMIN D [Concomitant]
     Active Substance: CHOLECALCIFEROL
     Dosage: 1 D/F, DAILY (1/D)
  10. PIROXICAM. [Concomitant]
     Active Substance: PIROXICAM
     Indication: ARTHRITIS
     Dosage: 1 D/F, UNK
  11. FLEXARTAL [Concomitant]
     Dosage: 1 D/F, AS NEEDED
  12. CYMBALTA [Suspect]
     Active Substance: DULOXETINE HYDROCHLORIDE
     Dosage: 120 MG, DAILY (1/D)
     Dates: start: 200810
  13. CYMBALTA [Suspect]
     Active Substance: DULOXETINE HYDROCHLORIDE
     Dosage: 60 MG, DAILY (1/D)
     Dates: start: 200803, end: 200805
  14. OMEPRAZOLE. [Concomitant]
     Active Substance: OMEPRAZOLE
     Indication: GASTROOESOPHAGEAL REFLUX DISEASE
     Dosage: 1 D/F, UNK

REACTIONS (6)
  - Stress [Unknown]
  - Fluid retention [Recovering/Resolving]
  - Hot flush [Unknown]
  - Anxiety [Unknown]
  - Headache [Unknown]
  - Menorrhagia [Not Recovered/Not Resolved]

NARRATIVE: CASE EVENT DATE: 2008
